FAERS Safety Report 11237782 (Version 2)
Quarter: 2018Q1

REPORT INFORMATION
  Report Type: Spontaneous
  Country: PE (occurrence: PE)
  Receive Date: 20150703
  Receipt Date: 20180309
  Transmission Date: 20180508
  Serious: Yes (Hospitalization, Other)
  Sender: FDA-Public Use
  Company Number: PE-009507513-1507PER001368

PATIENT
  Age: 65 Year
  Sex: Female

DRUGS (2)
  1. JANUMET [Suspect]
     Active Substance: METFORMIN HYDROCHLORIDE\SITAGLIPTIN PHOSPHATE
     Dosage: TABLET AT 50MG/1000MG, QD
     Route: 048
     Dates: end: 20160216
  2. JANUMET [Suspect]
     Active Substance: METFORMIN HYDROCHLORIDE\SITAGLIPTIN PHOSPHATE
     Indication: DIABETES MELLITUS
     Dosage: TABLET AT 50MG/1000MG, QD
     Route: 048
     Dates: start: 20150128, end: 2015

REACTIONS (5)
  - Renal disorder [Unknown]
  - Dengue fever [Unknown]
  - Inappropriate schedule of drug administration [Unknown]
  - Blood glucose increased [Unknown]
  - Bronchitis [Unknown]

NARRATIVE: CASE EVENT DATE: 201506
